FAERS Safety Report 6833895-2 (Version None)
Quarter: 2010Q3

REPORT INFORMATION
  Report Type: 
  Country: None (occurrence: None)
  Receive Date: 20100712
  Receipt Date: 20070404
  Transmission Date: 20110219
  Serious: No
  Sender: FDA-Public Use
  Company Number: US-PFIZER INC-2007028036

PATIENT
  Sex: Male
  Weight: 99.79 kg

DRUGS (2)
  1. CHANTIX [Suspect]
     Indication: SMOKING CESSATION THERAPY
     Dates: start: 20070301
  2. SIMVASTATIN [Concomitant]

REACTIONS (3)
  - DRY MOUTH [None]
  - NOCTURIA [None]
  - POLYDIPSIA [None]
